FAERS Safety Report 4742520-6 (Version None)
Quarter: 2005Q3

REPORT INFORMATION
  Report Type: 
  Country: None (occurrence: None)
  Receive Date: 20050811
  Receipt Date: 20050805
  Transmission Date: 20060218
  Serious: Yes (Death)
  Sender: FDA-Public Use
  Company Number: PE-BOEHRINGER INGELHEIM PHARMACEUTICALS, INC.-2005-BP-13425PB

PATIENT
  Age: 92 Year
  Sex: Male

DRUGS (4)
  1. SPIRIVA [Suspect]
     Indication: CHRONIC OBSTRUCTIVE PULMONARY DISEASE
     Route: 055
     Dates: start: 20030101, end: 20050201
  2. CORTICOSTEROIDS [Concomitant]
  3. VENTOLIN [Concomitant]
  4. ANTIBIOTICS [Concomitant]

REACTIONS (4)
  - CHRONIC OBSTRUCTIVE PULMONARY DISEASE [None]
  - LUNG INFECTION [None]
  - MYOCARDIAL INFARCTION [None]
  - PNEUMONIA [None]
